FAERS Safety Report 6117829-4 (Version None)
Quarter: 2009Q1

REPORT INFORMATION
  Report Type: 
  Country: None (occurrence: None)
  Receive Date: 20090314
  Receipt Date: 20090127
  Transmission Date: 20090719
  Serious: No
  Sender: FDA-Public Use
  Company Number: US-ABBOTT-09P-163-0500779-00

PATIENT
  Sex: Female
  Weight: 81.72 kg

DRUGS (14)
  1. HUMIRA [Suspect]
     Indication: CROHN'S DISEASE
     Dosage: ONCE
     Route: 058
     Dates: start: 20080701, end: 20080701
  2. HUMIRA [Suspect]
     Dosage: ONCE
     Route: 058
     Dates: start: 20080101, end: 20080101
  3. HUMIRA [Suspect]
     Route: 058
     Dates: start: 20080101
  4. PREVACID [Concomitant]
     Indication: GASTROOESOPHAGEAL REFLUX DISEASE
     Route: 048
  5. GABAPENTIN [Concomitant]
     Indication: NEURALGIA
     Dosage: 300 MG QAM AND 600 MG QHS
     Route: 048
  6. FEMTRACE [Concomitant]
     Indication: HORMONE REPLACEMENT THERAPY
     Dosage: 0.45 MG
     Route: 048
  7. DIOVAN [Concomitant]
     Indication: HYPERTENSION
     Route: 048
  8. DIOVAN [Concomitant]
     Route: 048
  9. POTASSIUM CHLORIDE [Concomitant]
     Indication: MEDICAL DIET
     Route: 048
  10. WELCHOL [Concomitant]
     Indication: CROHN'S DISEASE
     Route: 048
  11. TYLENOL (CAPLET) [Concomitant]
     Indication: ARTHRALGIA
     Route: 048
  12. MULTI-VITAMIN [Concomitant]
     Indication: ROUTINE HEALTH MAINTENANCE
     Dosage: UNKNOWN
     Route: 048
  13. CALCIUM [Concomitant]
     Indication: ROUTINE HEALTH MAINTENANCE
     Dosage: UNKNOWN
     Route: 048
  14. PREDNISONE [Concomitant]
     Indication: CROHN'S DISEASE
     Route: 048
     Dates: start: 20090128

REACTIONS (3)
  - CROHN'S DISEASE [None]
  - INCORRECT DOSE ADMINISTERED [None]
  - WRONG TECHNIQUE IN DRUG USAGE PROCESS [None]
